FAERS Safety Report 5201625-6 (Version None)
Quarter: 2006Q4

REPORT INFORMATION
  Report Type: 
  Country: None (occurrence: None)
  Receive Date: 20061006
  Receipt Date: 20060517
  Transmission Date: 20070319
  Serious: Yes (Other)
  Sender: FDA-Public Use
  Company Number: 200611387BWH

PATIENT
  Age: 54 Year
  Sex: Female

DRUGS (8)
  1. CIPRO [Suspect]
     Indication: CYSTITIS
     Dosage: ORAL; SEE IMAGE
     Route: 048
     Dates: start: 20050701
  2. CIPRO [Suspect]
     Indication: ESCHERICHIA INFECTION
     Dosage: ORAL; SEE IMAGE
     Route: 048
     Dates: start: 20050701
  3. CIPRO [Suspect]
     Indication: CYSTITIS
     Dosage: ORAL; SEE IMAGE
     Route: 048
     Dates: start: 20060101
  4. CIPRO [Suspect]
     Indication: ESCHERICHIA INFECTION
     Dosage: ORAL; SEE IMAGE
     Route: 048
     Dates: start: 20060101
  5. TETRACYCLINE [Concomitant]
  6. AUGMENTIN '125' [Concomitant]
  7. NITROFURANTOIN [Concomitant]
  8. KEFLEX [Concomitant]

REACTIONS (3)
  - BLOOD URINE PRESENT [None]
  - CYSTITIS [None]
  - INFECTION [None]
